FAERS Safety Report 12039899 (Version 1)
Quarter: 2016Q1

REPORT INFORMATION
  Report Type: Spontaneous
  Country: None (occurrence: US)
  Receive Date: 20160208
  Receipt Date: 20160208
  Transmission Date: 20160526
  Serious: No
  Sender: FDA-Public Use
  Company Number: US-AMAG PHARMACEUTICALS, INC.-AMAG201501483

PATIENT
  Age: 29 Year
  Sex: Female
  Weight: 80.27 kg

DRUGS (2)
  1. MAKENA [Suspect]
     Active Substance: HYDROXYPROGESTERONE CAPROATE
     Indication: PREMATURE DELIVERY
     Dosage: 250 MG, WEEKLY
     Route: 030
     Dates: start: 20150927
  2. PRENATAL VITAMINS [Concomitant]
     Active Substance: VITAMINS
     Dosage: 1 TABS, QD
     Route: 048

REACTIONS (2)
  - Injection site pruritus [Recovered/Resolved]
  - Injection site rash [Recovered/Resolved]

NARRATIVE: CASE EVENT DATE: 20151231
